FAERS Safety Report 20378099 (Version 16)
Quarter: 2023Q2

REPORT INFORMATION
  Report Type: Report from Study
  Country: CO (occurrence: CO)
  Receive Date: 20220126
  Receipt Date: 20230419
  Transmission Date: 20230721
  Serious: Yes (Death, Hospitalization, Other)
  Sender: FDA-Public Use
  Company Number: CO-TAKEDA-2020TUS028797

PATIENT
  Age: 36 Year
  Sex: Male
  Weight: 53 kg

DRUGS (2)
  1. VEDOLIZUMAB [Suspect]
     Active Substance: VEDOLIZUMAB
     Indication: Colitis ulcerative
     Dosage: 300 MILLIGRAM
     Route: 042
     Dates: start: 20200219
  2. VEDOLIZUMAB [Suspect]
     Active Substance: VEDOLIZUMAB
     Dosage: 300 MILLIGRAM, Q4WEEKS
     Route: 042
     Dates: start: 20200612

REACTIONS (21)
  - Death [Fatal]
  - Procedural complication [Recovering/Resolving]
  - Appendicitis [Recovering/Resolving]
  - Cholelithiasis [Recovering/Resolving]
  - Metastases to lung [Unknown]
  - Colon cancer metastatic [Unknown]
  - Haemoglobin decreased [Unknown]
  - Treatment noncompliance [Unknown]
  - Weight decreased [Unknown]
  - Rectal fissure [Recovering/Resolving]
  - Malaise [Recovering/Resolving]
  - Weight increased [Recovering/Resolving]
  - Sneezing [Recovering/Resolving]
  - Abdominal mass [Unknown]
  - Therapeutic product effect decreased [Unknown]
  - Decreased appetite [Recovering/Resolving]
  - Nasal congestion [Recovering/Resolving]
  - Headache [Recovering/Resolving]
  - Cough [Recovering/Resolving]
  - Influenza [Recovering/Resolving]
  - Pyrexia [Recovering/Resolving]

NARRATIVE: CASE EVENT DATE: 20210621
